FAERS Safety Report 9902995 (Version 2)
Quarter: 2014Q1

REPORT INFORMATION
  Report Type: Report from Study
  Country: NL (occurrence: NL)
  Receive Date: 20140217
  Receipt Date: 20140217
  Transmission Date: 20141002
  Serious: Yes (Hospitalization)
  Sender: FDA-Public Use
  Company Number: PHHY2014NL004470

PATIENT
  Age: 70 Year
  Sex: Male

DRUGS (14)
  1. ZOMETA [Suspect]
     Indication: PROSTATE CANCER METASTATIC
     Dosage: 4 MG/ 100 ML ONCE EVERY 4 WEEKS
     Route: 042
  2. ZOMETA [Suspect]
     Dosage: 4 MG/ 100 ML ONCE EVERY 4 WEEKS
     Route: 042
     Dates: start: 20120814
  3. ZOMETA [Suspect]
     Dosage: 4 MG/ 100 ML ONCE EVERY 4 WEEKS
     Route: 042
     Dates: start: 20131218
  4. ZOMETA [Suspect]
     Dosage: 4 MG/ 100 ML ONCE EVERY 4 WEEKS
     Route: 042
     Dates: start: 20140114
  5. ZOMETA [Suspect]
     Dosage: 4 MG/ 100 ML ONCE EVERY 4 WEEKS
     Route: 042
     Dates: start: 20140211
  6. CELEBREX [Concomitant]
     Dosage: 200 MG, 1X
  7. FENPROCOUMON [Concomitant]
     Dosage: UNK ACCORDING TO SCHEDULE
  8. METOPROLOL [Concomitant]
     Dosage: 50 MG, 2X
  9. AMITRIPTYLINE [Concomitant]
     Dosage: 25 MG, 1X
  10. MINRIN [Concomitant]
     Dosage: 60 MG, 1X
  11. TOVIAZ [Concomitant]
     Dosage: 4 MG, 1X
  12. FENTANYL [Concomitant]
     Dosage: 75 UG, PER 72 HRS
  13. PREDNISOLONE [Concomitant]
     Dosage: 10 MG, 2X
  14. ZYTIGA [Concomitant]
     Dosage: 250 MG, 4X

REACTIONS (2)
  - Arrhythmia [Recovering/Resolving]
  - Anaemia [Recovering/Resolving]
